FAERS Safety Report 8447837 (Version 3)
Quarter: 2013Q2

REPORT INFORMATION
  Report Type: Report from Study
  Country: DE (occurrence: DE)
  Receive Date: 20120308
  Receipt Date: 20130429
  Transmission Date: 20140414
  Serious: Yes (Hospitalization)
  Sender: FDA-Public Use
  Company Number: DE-UCBSA-052524

PATIENT
  Sex: Female
  Weight: 89 kg

DRUGS (15)
  1. CERTOLIZUMAB PEGOL [Suspect]
     Indication: RHEUMATOID ARTHRITIS
     Dosage: 200 MG, NO. OF DOSES RECEIVED 6
     Route: 058
     Dates: start: 20110713, end: 20120104
  2. PREDNISOLONE [Concomitant]
     Indication: RHEUMATOID ARTHRITIS
     Dosage: DAILY DOSE:5 MG
     Route: 048
     Dates: start: 20110711, end: 20111010
  3. PREDNISOLONE [Concomitant]
     Indication: RHEUMATOID ARTHRITIS
     Dosage: DAILY DOSE: 2.5 MG
     Route: 048
     Dates: start: 20111011, end: 20120104
  4. PREDNISOLONE [Concomitant]
     Indication: RHEUMATOID ARTHRITIS
     Dosage: DAILY DOSE: 5 MG
     Route: 048
     Dates: start: 20120105, end: 20120703
  5. PREDNISOLONE [Concomitant]
     Indication: RHEUMATOID ARTHRITIS
     Dosage: DAILY DOSE: 2 MG, EVERY OTHER DAY
     Dates: start: 20120704, end: 201207
  6. PREDNISOLONE [Concomitant]
     Indication: RHEUMATOID ARTHRITIS
     Dosage: DAILY DOSE: 5 MG, EVERY OTHER DAY
     Dates: start: 20120705, end: 20130404
  7. LEFLUNOMIDE [Concomitant]
     Indication: RHEUMATOID ARTHRITIS
     Dosage: DAILY DOSE: 20 MG
     Route: 048
     Dates: start: 20100824, end: 20120930
  8. LEFLUNOMIDE [Concomitant]
     Indication: RHEUMATOID ARTHRITIS
     Dosage: DAILY DOSE: 10 MG
     Dates: start: 20121001
  9. IBUPROFEN [Concomitant]
     Indication: RHEUMATOID ARTHRITIS
     Route: 048
  10. IBUPROFEN [Concomitant]
     Indication: RHEUMATOID ARTHRITIS
     Dates: start: 20130107
  11. ALENDRONIC ACID [Concomitant]
     Indication: OSTEOPOROSIS
     Dosage: 70 MG PER WEEK
     Route: 048
     Dates: start: 20100719
  12. FALITHROM [Concomitant]
     Indication: THROMBOSIS PROPHYLAXIS
     Dosage: 3 MG ACCORDING TO QUICK^S VALUE
     Route: 048
     Dates: start: 20100818, end: 2010
  13. FALITHROM [Concomitant]
     Indication: THROMBOSIS PROPHYLAXIS
     Dates: start: 2010, end: 20130404
  14. TILIDINE [Concomitant]
     Indication: PAIN
     Route: 048
     Dates: start: 20111011, end: 20120410
  15. FOSAVANCE [Concomitant]
     Indication: OSTEOPOROSIS
     Dosage: DOSE:70 MG, A SUFFICIENT QUANTITY
     Dates: start: 2010

REACTIONS (1)
  - Muscle abscess [Recovered/Resolved]
